FAERS Safety Report 8045967-8 (Version None)
Quarter: 2012Q1

REPORT INFORMATION
  Report Type: 
  Country: None (occurrence: None)
  Receive Date: 20120113
  Receipt Date: 20120104
  Transmission Date: 20120608
  Serious: Yes (Other)
  Sender: FDA-Public Use
  Company Number: US-UCBSA-049533

PATIENT
  Sex: Female

DRUGS (7)
  1. KEPPRA [Suspect]
     Dosage: 500
     Route: 064
     Dates: start: 20080101, end: 20080101
  2. KEPPRA [Suspect]
     Indication: CONVULSION
     Route: 064
     Dates: start: 20080101, end: 20080101
  3. METFORMIN HCL [Concomitant]
     Indication: CYST
     Dosage: TOTAL DAILY DOSE : 750 MG
     Route: 064
     Dates: start: 20080201, end: 20080430
  4. PROGESTERONE [Concomitant]
     Indication: PREGNANCY
     Route: 064
     Dates: start: 20080226, end: 20080430
  5. ASPIRIN [Concomitant]
     Indication: PREGNANCY
     Dosage: TOTAL DAILY DOSE : 81 MG
     Route: 064
     Dates: start: 20080226
  6. KEPPRA [Suspect]
     Route: 064
     Dates: start: 20080101, end: 20080101
  7. VITAMIN AND MINERAL PRENATAL SUPPLEMENT W/ FOLIC ACID CAP [Concomitant]
     Indication: PREGNANCY
     Route: 064
     Dates: start: 20080101, end: 20081112

REACTIONS (3)
  - UNDERWEIGHT [None]
  - FOETAL EXPOSURE DURING PREGNANCY [None]
  - CEREBRAL VENTRICLE DILATATION [None]
